FAERS Safety Report 25857297 (Version 2)
Quarter: 2025Q4

REPORT INFORMATION
  Report Type: Spontaneous
  Country: US (occurrence: US)
  Receive Date: 20250929
  Receipt Date: 20251009
  Transmission Date: 20260118
  Serious: No
  Sender: ROCHE
  Company Number: US-ROCHE-10000394912

PATIENT
  Age: 52 Year
  Sex: Female
  Weight: 83.46 kg

DRUGS (39)
  1. XOLAIR [Suspect]
     Active Substance: OMALIZUMAB
     Indication: Urticaria
     Route: 058
     Dates: start: 202411
  2. LIDOCAINE [Concomitant]
     Active Substance: LIDOCAINE
     Indication: Arthralgia
  3. KENALOG [Concomitant]
     Active Substance: TRIAMCINOLONE ACETONIDE
     Indication: Arthralgia
  4. EMEND [Concomitant]
     Active Substance: APREPITANT
     Route: 048
  5. Symbicort/Breyna [Concomitant]
     Indication: Asthma
     Dosage: 160/4.5 TWO PUFFS TWO TO FOUR TIMES DAILY
  6. AZELASTINE [Concomitant]
     Active Substance: AZELASTINE
     Indication: Rhinitis allergic
     Dosage: NASAL SPRAY 137 MCG PER ACTUATION, ONE TO TWO SPRAYS BOTH NOSTRILS ONE TO TWO TIMES DAILY
  7. EPIPEN [Concomitant]
     Active Substance: EPINEPHRINE
     Indication: Hypersensitivity
     Dosage: EPIPEN 0.3 MG PER 0.3 ML, INJECT INTO LATERAL THIGH AS NEEDED
  8. PREDNISONE [Concomitant]
     Active Substance: PREDNISONE
     Indication: Asthma
     Route: 048
  9. PREDNISONE [Concomitant]
     Active Substance: PREDNISONE
     Indication: Anaphylactic reaction
     Route: 048
  10. NAMENDA [Concomitant]
     Active Substance: MEMANTINE HYDROCHLORIDE
     Indication: Neuralgia
     Route: 048
  11. ETODOLAC [Concomitant]
     Active Substance: ETODOLAC
     Indication: Back pain
     Route: 048
  12. ETODOLAC [Concomitant]
     Active Substance: ETODOLAC
     Indication: Intervertebral disc degeneration
  13. ETODOLAC [Concomitant]
     Active Substance: ETODOLAC
     Indication: Headache
  14. CYTOMEL [Concomitant]
     Active Substance: LIOTHYRONINE SODIUM
     Indication: Hypothyroidism
  15. SYNTHROID [Concomitant]
     Active Substance: LEVOTHYROXINE SODIUM
     Indication: Hypothyroidism
     Route: 048
  16. BIOTIN [Concomitant]
     Active Substance: BIOTIN
     Route: 048
  17. METHYLENE BLUE [Concomitant]
     Active Substance: METHYLENE BLUE
     Indication: Fatigue
     Dosage: DISPENSE 1.44 GM, COMPOUNDED INTO 8 MG CAPSULES, TAKE ONE CAPSULE ONE TO TWO TIMES DAILY
  18. NALTREXONE [Concomitant]
     Active Substance: NALTREXONE
     Indication: Complex regional pain syndrome
  19. NALTREXONE [Concomitant]
     Active Substance: NALTREXONE
     Indication: Arthralgia
  20. REPATHA [Concomitant]
     Active Substance: EVOLOCUMAB
     Indication: Type IIa hyperlipidaemia
     Dosage: 140 MG/ML,
     Route: 058
  21. MENAQUINONE 6 [Concomitant]
     Active Substance: MENAQUINONE 6
  22. BACLOFEN [Concomitant]
     Active Substance: BACLOFEN
     Indication: Muscle spasticity
  23. PANTETHINE [Concomitant]
     Active Substance: PANTETHINE
     Indication: Post-acute COVID-19 syndrome
  24. PEPCID [Concomitant]
     Active Substance: FAMOTIDINE
     Indication: Hypersensitivity
  25. ZETIA [Concomitant]
     Active Substance: EZETIMIBE
     Indication: Hyperlipidaemia
     Route: 048
  26. HYDROCORTISONE [Concomitant]
     Active Substance: HYDROCORTISONE
     Route: 048
  27. PROGESTERONE [Concomitant]
     Active Substance: PROGESTERONE
     Indication: Premature menopause
     Route: 048
  28. ESTRADIOL [Concomitant]
     Active Substance: ESTRADIOL
     Indication: Osteoporosis
  29. ESTRADIOL [Concomitant]
     Active Substance: ESTRADIOL
     Indication: Menopausal symptoms
  30. CITICOLINE [Concomitant]
     Active Substance: CITICOLINE
     Indication: Post-acute COVID-19 syndrome
  31. FLUDROCORTISONE [Concomitant]
     Active Substance: FLUDROCORTISONE
     Indication: Adrenal insufficiency
  32. TOCOTRIENOLS [Concomitant]
     Active Substance: TOCOTRIENOLS
  33. LEVOCARNITINE [Concomitant]
     Active Substance: LEVOCARNITINE
     Indication: Post-acute COVID-19 syndrome
  34. VITAMIN B1 [Concomitant]
     Active Substance: THIAMINE HYDROCHLORIDE
     Indication: Post-acute COVID-19 syndrome
  35. CREATINE [Concomitant]
     Active Substance: CREATINE
     Indication: Post-acute COVID-19 syndrome
  36. BETAINE [Concomitant]
     Active Substance: BETAINE
  37. COLLAGEN [Concomitant]
     Active Substance: COLLAGEN
     Indication: Osteoarthritis
  38. Glucosamine chondroitin with MSM [Concomitant]
     Indication: Osteoarthritis
     Dosage: 500/200/150 MG, FOUR CAPSULES DAILY WITH FOOD
  39. Ubiquinol Pyrroloquinoline quinone [Concomitant]
     Dosage: 100/10 MG CAPSULE, ONE CAPSULE DAILY
     Route: 048

REACTIONS (4)
  - Underdose [Unknown]
  - Injection site pain [Unknown]
  - Exposure via skin contact [Unknown]
  - Device issue [Unknown]

NARRATIVE: CASE EVENT DATE: 20250825
